FAERS Safety Report 18363322 (Version 1)
Quarter: 2020Q4

REPORT INFORMATION
  Report Type: Spontaneous
  Country: IT (occurrence: IT)
  Receive Date: 20201009
  Receipt Date: 20201009
  Transmission Date: 20210114
  Serious: Yes (Other)
  Sender: FDA-Public Use
  Company Number: IT-TEVA-2020-IT-1835311

PATIENT
  Age: 71 Year
  Sex: Male

DRUGS (6)
  1. OXALIPLATIN. [Suspect]
     Active Substance: OXALIPLATIN
     Indication: COLORECTAL CANCER STAGE III
     Dosage: ON DAY 1, REPEATED EVERY 21 DAYS FOR 6 CYCLES
     Route: 065
  2. CAPECITABINE. [Suspect]
     Active Substance: CAPECITABINE
     Indication: COLORECTAL CANCER STAGE III
     Dosage: ON DAYS 1-14, REPEATED EVERY 21 DAYS FOR 6 CYCLES
     Route: 065
  3. FLUOROURACIL. [Suspect]
     Active Substance: FLUOROURACIL
     Indication: COLORECTAL CANCER METASTATIC
     Dosage: ON DAYS 1-4 AND DAYS 15-18, REPEATED EVERY 28 DAYS
     Route: 065
  4. AFLIBERCEPT [Suspect]
     Active Substance: AFLIBERCEPT
     Dosage: ON DAY 1 AND DAY 15, REPEATED EVERY 28 DAYS
     Route: 065
  5. IRINOTECAN [Suspect]
     Active Substance: IRINOTECAN
     Indication: COLORECTAL CANCER METASTATIC
     Dosage: ON DAY 1 AND DAY 15, REPEATED EVERY 28 DAYS
     Route: 065
  6. AFLIBERCEPT [Suspect]
     Active Substance: AFLIBERCEPT
     Indication: COLORECTAL CANCER METASTATIC
     Dosage: ON DAY 1 AND DAY 15; REPEATED EVERY 28 DAYS
     Route: 065

REACTIONS (11)
  - Epistaxis [Unknown]
  - Anaemia [Unknown]
  - Alopecia [Unknown]
  - Rhinitis [Unknown]
  - Diarrhoea [Unknown]
  - Mucosal inflammation [Unknown]
  - Hypertension [Unknown]
  - Palmar-plantar erythrodysaesthesia syndrome [Unknown]
  - Asthenia [Unknown]
  - Dysphonia [Unknown]
  - Blood bilirubin increased [Unknown]
